FAERS Safety Report 8760874 (Version 4)
Quarter: 2013Q3

REPORT INFORMATION
  Report Type: Spontaneous
  Country: IE (occurrence: IE)
  Receive Date: 20120830
  Receipt Date: 20130829
  Transmission Date: 20140515
  Serious: Yes (Hospitalization, Other)
  Sender: FDA-Public Use
  Company Number: IE-JNJFOC-20120811145

PATIENT
  Age: 64 Year
  Sex: Male

DRUGS (13)
  1. SIMPONI [Suspect]
     Indication: ARTHROPATHY
     Route: 058
     Dates: end: 201206
  2. SIMPONI [Suspect]
     Indication: ARTHROPATHY
     Route: 058
     Dates: start: 20110321
  3. ONE ALPHA [Concomitant]
     Dosage: 1000 ^DEG^
     Route: 065
     Dates: start: 2010
  4. METHOTREXATE [Concomitant]
     Route: 065
     Dates: start: 20100406
  5. NEXIUM [Concomitant]
     Route: 065
  6. SULFASALAZINE [Concomitant]
     Route: 065
     Dates: start: 20101003
  7. DELTA CORTRIL [Concomitant]
     Route: 065
  8. FOLIC ACID [Concomitant]
     Route: 065
  9. CALCICHEW [Concomitant]
     Dosage: ^T BD^
     Route: 065
     Dates: start: 2010
  10. SERETIDE [Concomitant]
     Dosage: ONE PILL
     Route: 065
  11. ZOCOR [Concomitant]
     Route: 065
  12. DIFENE [Concomitant]
     Route: 061
  13. PARACETAMOL [Concomitant]
     Route: 065

REACTIONS (3)
  - Colitis [Unknown]
  - Barrett^s oesophagus [Unknown]
  - Dyspnoea [Recovering/Resolving]
